FAERS Safety Report 9708515 (Version 1)
Quarter: 2013Q4

REPORT INFORMATION
  Report Type: Spontaneous
  Country: US (occurrence: US)
  Receive Date: 20131125
  Receipt Date: 20131125
  Transmission Date: 20140711
  Serious: Yes (Hospitalization)
  Sender: FDA-Public Use
  Company Number: US-BAYER-2013-142896

PATIENT
  Age: 53 Year
  Sex: Male

DRUGS (1)
  1. MAGNEVIST [Suspect]
     Indication: CEREBRAL SARCOIDOSIS
     Dosage: 8 MG, ONCE
     Route: 042
     Dates: start: 20131120, end: 20131120

REACTIONS (1)
  - Vomiting [None]
